FAERS Safety Report 17664898 (Version 1)
Quarter: 2020Q2

REPORT INFORMATION
  Report Type: Spontaneous
  Country: US (occurrence: US)
  Receive Date: 20200413
  Receipt Date: 20200413
  Transmission Date: 20200713
  Serious: Yes (Hospitalization)
  Sender: FDA-Public Use
  Company Number: None

PATIENT
  Age: 64 Year
  Sex: Male
  Weight: 96.16 kg

DRUGS (3)
  1. FLUOXETINE (FLUOXETINE HCL 20MG CAP) [Suspect]
     Active Substance: FLUOXETINE HYDROCHLORIDE
     Indication: ANXIETY
     Dosage: ?          OTHER FREQUENCY:AM;?
     Route: 048
     Dates: start: 20190118
  2. PRAZOSIN (PRAZOSIN HCL 5MG CAP) [Suspect]
     Active Substance: PRAZOSIN HYDROCHLORIDE
     Indication: POST-TRAUMATIC STRESS DISORDER
     Dosage: EVERY AM
     Route: 048
     Dates: start: 20190118
  3. FLUOXETINE (FLUOXETINE HCL 20MG CAP) [Suspect]
     Active Substance: FLUOXETINE HYDROCHLORIDE
     Indication: DEPRESSION
     Dosage: ?          OTHER FREQUENCY:AM;?
     Route: 048
     Dates: start: 20190118

REACTIONS (2)
  - Dizziness [None]
  - Dehydration [None]

NARRATIVE: CASE EVENT DATE: 20190710
